FAERS Safety Report 5164710-3 (Version None)
Quarter: 2006Q4

REPORT INFORMATION
  Report Type: 
  Country: None (occurrence: None)
  Receive Date: 20061205
  Receipt Date: 20061128
  Transmission Date: 20070319
  Serious: Yes (Hospitalization)
  Sender: FDA-Public Use
  Company Number: GB-SANOFI-SYNTHELABO-F01200602425

PATIENT
  Sex: Female
  Weight: 90 kg

DRUGS (8)
  1. BENDROFLUAZIDE [Concomitant]
     Route: 048
     Dates: end: 20061121
  2. AMLODIPINE [Concomitant]
     Route: 048
     Dates: end: 20061121
  3. ORAMORPH SR [Concomitant]
     Route: 048
     Dates: start: 20061011, end: 20061121
  4. FENTANYL [Concomitant]
     Route: 050
     Dates: start: 20061011
  5. CETUXIMAB [Suspect]
     Route: 041
     Dates: start: 20061117, end: 20061117
  6. FLUOROURACIL [Suspect]
     Dosage: 400 MG/M2 BOLUS FOLLOWED BY A 46 HOUR INFUSION OF 2400 MG/M2
     Route: 041
     Dates: start: 20061117, end: 20061118
  7. LEUCOVORIN CALCIUM [Suspect]
     Route: 041
     Dates: start: 20061117, end: 20061117
  8. OXALIPLATIN [Suspect]
     Indication: COLORECTAL CANCER METASTATIC
     Route: 041
     Dates: start: 20061117, end: 20061117

REACTIONS (5)
  - APHAGIA [None]
  - AREFLEXIA [None]
  - BALANCE DISORDER [None]
  - CEREBROVASCULAR ACCIDENT [None]
  - HEMIPARESIS [None]
